FAERS Safety Report 5426796-8 (Version None)
Quarter: 2007Q3

REPORT INFORMATION
  Report Type: 
  Country: None (occurrence: None)
  Receive Date: 20070827
  Receipt Date: 20070116
  Transmission Date: 20080115
  Serious: No
  Sender: FDA-Public Use
  Company Number: US-BOEHRINGER INGELHEIM PHARMACEUTICALS, INC.-2007-BP-00712BP

PATIENT
  Age: 83 Year
  Sex: Female

DRUGS (2)
  1. CATAPRES-TTS-1 [Suspect]
     Indication: HYPERTENSION
     Route: 061
     Dates: start: 20060701
  2. CLONIDINE [Concomitant]
     Indication: HYPERTENSION
     Route: 048
     Dates: start: 20060701

REACTIONS (2)
  - APPLICATION SITE ERYTHEMA [None]
  - BLOOD PRESSURE INADEQUATELY CONTROLLED [None]
